FAERS Safety Report 16007081 (Version 2)
Quarter: 2019Q1

REPORT INFORMATION
  Report Type: Spontaneous
  Country: US (occurrence: US)
  Receive Date: 20190225
  Receipt Date: 20190225
  Transmission Date: 20190418
  Serious: No
  Sender: FDA-Public Use
  Company Number: US-TEVA-2018-US-892489

PATIENT
  Sex: Female

DRUGS (6)
  1. AQUAPHOR EMOLLIENT OINTMENT [Concomitant]
     Indication: OMENN SYNDROME
     Route: 061
  2. PREDNISONE. [Suspect]
     Active Substance: PREDNISONE
     Indication: OMENN SYNDROME
     Dosage: INITIAL DOSE UNKNOWN; LATER TAPERED TO 0.16MG/KG EVERY 24 HOURS
     Route: 048
  3. METHYLPREDNISOLONE. [Suspect]
     Active Substance: METHYLPREDNISOLONE
     Indication: OMENN SYNDROME
     Dosage: INCREASED TO 2MG/KG DAILY
     Route: 042
  4. METHYLPREDNISOLONE. [Suspect]
     Active Substance: METHYLPREDNISOLONE
     Indication: OMENN SYNDROME
     Route: 042
  5. CICLOSPORIN [Suspect]
     Active Substance: CYCLOSPORINE
     Indication: PRODUCT USED FOR UNKNOWN INDICATION
     Route: 065
  6. SODIUM HYPOCHLORITE [Concomitant]
     Active Substance: SODIUM HYPOCHLORITE
     Indication: OMENN SYNDROME
     Dosage: 0.005%VOLUME/VOLUME FOR 10 MINUTES THREE TIMES WEEKLY; COMPRESSES
     Route: 061

REACTIONS (2)
  - Hypertension [Unknown]
  - Hypertrichosis [Unknown]
